FAERS Safety Report 5257794-5 (Version None)
Quarter: 2007Q1

REPORT INFORMATION
  Report Type: 
  Country: None (occurrence: None)
  Receive Date: 20070307
  Receipt Date: 20070227
  Transmission Date: 20070707
  Serious: Yes (Hospitalization)
  Sender: FDA-Public Use
  Company Number: 2006CG02077

PATIENT
  Age: 11972 Day
  Sex: Male
  Weight: 68 kg

DRUGS (1)
  1. CRESTOR [Suspect]
     Indication: HYPERCHOLESTEROLAEMIA
     Route: 048
     Dates: start: 20061104, end: 20061124

REACTIONS (4)
  - CHEST PAIN [None]
  - ERECTILE DYSFUNCTION [None]
  - MUSCLE ATROPHY [None]
  - MYALGIA [None]
